FAERS Safety Report 21748152 (Version 1)
Quarter: 2022Q4

REPORT INFORMATION
  Report Type: Spontaneous
  Country: CA (occurrence: CA)
  Receive Date: 20221219
  Receipt Date: 20221219
  Transmission Date: 20230113
  Serious: Yes (Other)
  Sender: FDA-Public Use
  Company Number: CA-PFIZER INC-202201369049

PATIENT
  Age: 83 Year
  Sex: Female
  Weight: 90 kg

DRUGS (12)
  1. RUXIENCE [Suspect]
     Active Substance: RITUXIMAB-PVVR
     Indication: Rheumatoid arthritis
     Dosage: 1000 MG, DAY 1 AND DAY 15
     Route: 042
     Dates: start: 20211221, end: 20220104
  2. RUXIENCE [Suspect]
     Active Substance: RITUXIMAB-PVVR
     Dosage: 1000 MG, RETREATMENT- DAY 1 AND DAY 15
     Route: 042
     Dates: start: 20220622, end: 20220707
  3. RUXIENCE [Suspect]
     Active Substance: RITUXIMAB-PVVR
     Dosage: 1000 MG, RETREATMENT- DAY 1 AND DAY 15
     Route: 042
     Dates: start: 20220707
  4. ADALAT [Concomitant]
     Active Substance: NIFEDIPINE
     Indication: Blood pressure abnormal
     Dosage: 90MG XR DAILY AT HS
  5. ARAVA [Concomitant]
     Active Substance: LEFLUNOMIDE
     Dosage: UNK
  6. COVID-19 VACCINE [Concomitant]
     Indication: COVID-19 immunisation
     Dosage: DOSE 5, SINGLE
     Dates: start: 202205, end: 202205
  7. COVID-19 VACCINE [Concomitant]
     Dosage: DOSE 4, SINGLE
  8. COVID-19 VACCINE [Concomitant]
     Dosage: DOSE 3, SINGLE
  9. COVID-19 VACCINE [Concomitant]
     Dosage: DOSE 2, SINGLE
  10. COVID-19 VACCINE [Concomitant]
     Dosage: DOSE 1, SINGLE
  11. LASIX [Concomitant]
     Active Substance: FUROSEMIDE
     Indication: Blood pressure abnormal
     Dosage: UNK, AS NEEDED
  12. SPIRONOLACTONE [Concomitant]
     Active Substance: SPIRONOLACTONE
     Indication: Blood pressure abnormal
     Dosage: UNK

REACTIONS (7)
  - Cataract [Recovered/Resolved]
  - Cardiac failure congestive [Unknown]
  - Therapeutic response shortened [Unknown]
  - COVID-19 [Recovered/Resolved]
  - Cystitis [Recovered/Resolved]
  - Anaemia [Unknown]
  - Off label use [Unknown]

NARRATIVE: CASE EVENT DATE: 20220101
